FAERS Safety Report 12917298 (Version 8)
Quarter: 2025Q4

REPORT INFORMATION
  Report Type: Spontaneous
  Country: GB (occurrence: GB)
  Receive Date: 20161107
  Receipt Date: 20251014
  Transmission Date: 20260118
  Serious: Yes (Other)
  Sender: SANOFI AVENTIS
  Company Number: GB-SA-2016SA199715

PATIENT
  Age: 7 Month
  Sex: Female

DRUGS (14)
  1. MYCOPHENOLATE MOFETIL [Suspect]
     Active Substance: MYCOPHENOLATE MOFETIL
     Indication: Prophylaxis against graft versus host disease
     Dosage: UNK
     Dates: start: 2012
  2. METHYLPREDNISOLONE [Suspect]
     Active Substance: METHYLPREDNISOLONE
     Indication: Graft versus host disease
     Dosage: 2 MG/KG
  3. ALEMTUZUMAB [Suspect]
     Active Substance: ALEMTUZUMAB
     Indication: Bone marrow conditioning regimen
     Dosage: 0.3 MG/KG
     Route: 065
     Dates: start: 2013, end: 2013
  4. ALEMTUZUMAB [Suspect]
     Active Substance: ALEMTUZUMAB
     Dosage: 1 MG/KG,UNK
     Route: 065
     Dates: start: 2014, end: 2014
  5. FLUDARABINE PHOSPHATE [Suspect]
     Active Substance: FLUDARABINE PHOSPHATE
     Indication: Bone marrow conditioning regimen
     Dosage: 150 MG/M2,UNK
     Route: 065
     Dates: start: 2013, end: 2013
  6. FLUDARABINE PHOSPHATE [Suspect]
     Active Substance: FLUDARABINE PHOSPHATE
     Dosage: 150 MG/M2,UNK
     Route: 065
     Dates: start: 2014, end: 2014
  7. INFLIXIMAB [Suspect]
     Active Substance: INFLIXIMAB
     Indication: Graft versus host disease
     Dosage: UNK UNK,QW
  8. TREOSULFAN [Suspect]
     Active Substance: TREOSULFAN
     Indication: Bone marrow conditioning regimen
     Dosage: 36 G/M2,UNK
     Route: 065
     Dates: start: 2013, end: 2013
  9. TREOSULFAN [Suspect]
     Active Substance: TREOSULFAN
     Dosage: 36 G/M2,UNK
     Route: 065
     Dates: start: 2014, end: 2014
  10. CYCLOSPORINE [Suspect]
     Active Substance: CYCLOSPORINE
     Indication: Prophylaxis against graft versus host disease
     Dosage: UNK UNK,UNK
     Dates: start: 2012
  11. THYMOGLOBULIN [Concomitant]
     Active Substance: LAPINE T-LYMPHOCYTE IMMUNE GLOBULIN
     Dosage: 25 MG/KG
  12. THIOTEPA [Concomitant]
     Active Substance: THIOTEPA
     Dosage: 15 MG/KG,UNK
  13. CIDOFOVIR [Concomitant]
     Active Substance: CIDOFOVIR
     Dosage: UNK
  14. TACROLIMUS [Concomitant]
     Active Substance: TACROLIMUS
     Indication: Prophylaxis against graft versus host disease
     Dosage: UNK

REACTIONS (8)
  - Acute graft versus host disease in skin [Not Recovered/Not Resolved]
  - Rash [Not Recovered/Not Resolved]
  - Drug ineffective [Unknown]
  - Immune reconstitution inflammatory syndrome [Unknown]
  - Hypertension [Not Recovered/Not Resolved]
  - Gastroenteritis norovirus [Recovered/Resolved]
  - Adenovirus infection [Recovered/Resolved]
  - Off label use [Unknown]
